FAERS Safety Report 17953333 (Version 14)
Quarter: 2021Q3

REPORT INFORMATION
  Report Type: Spontaneous
  Country: US (occurrence: US)
  Receive Date: 20200628
  Receipt Date: 20210820
  Transmission Date: 20211014
  Serious: No
  Sender: FDA-Public Use
  Company Number: US-GLAXOSMITHKLINE-US2020AMR108467

PATIENT
  Sex: Female

DRUGS (10)
  1. ZEJULA [Suspect]
     Active Substance: NIRAPARIB
     Dosage: 200 MG, QD
     Route: 065
     Dates: start: 20200618, end: 20200713
  2. ZEJULA [Suspect]
     Active Substance: NIRAPARIB
     Indication: OVARIAN CANCER
     Dosage: 100 MG, QD
     Dates: start: 20200616
  3. XELJANZ [Suspect]
     Active Substance: TOFACITINIB CITRATE
     Indication: PRODUCT USED FOR UNKNOWN INDICATION
     Dosage: UNK
  4. ZARXIO [Concomitant]
     Active Substance: FILGRASTIM-SNDZ
     Indication: PRODUCT USED FOR UNKNOWN INDICATION
     Dosage: UNK
  5. LEVOTHYROXINE SODIUM. [Concomitant]
     Active Substance: LEVOTHYROXINE SODIUM
     Indication: PRODUCT USED FOR UNKNOWN INDICATION
     Dosage: UNK
  6. DEXAMETHASONE. [Concomitant]
     Active Substance: DEXAMETHASONE
     Indication: PRODUCT USED FOR UNKNOWN INDICATION
     Dosage: UNK
  7. ZEJULA [Suspect]
     Active Substance: NIRAPARIB
     Dosage: 1 DF, QD (CAPSULE)
     Dates: start: 20200724
  8. ZEJULA [Suspect]
     Active Substance: NIRAPARIB
     Dosage: 100 MG, QD
  9. ZEJULA [Suspect]
     Active Substance: NIRAPARIB
     Dosage: 100 MG, QD
     Dates: start: 20200713, end: 20201002
  10. ZEJULA [Suspect]
     Active Substance: NIRAPARIB
     Dosage: 100 MG, QD
     Dates: start: 20201015

REACTIONS (21)
  - Rash pruritic [Unknown]
  - Vulvovaginal pain [Unknown]
  - Skin disorder [Unknown]
  - Constipation [Not Recovered/Not Resolved]
  - Skin haemorrhage [Unknown]
  - Arthropod bite [Unknown]
  - Hernia [Unknown]
  - Sensitive skin [Unknown]
  - Papule [Unknown]
  - Product use issue [Unknown]
  - Catheter management [Unknown]
  - Blood pressure increased [Unknown]
  - Sleep disorder [Unknown]
  - Hypersensitivity [Unknown]
  - Poor quality sleep [Recovering/Resolving]
  - Mass [Unknown]
  - Alopecia [Unknown]
  - Hyperaesthesia [Not Recovered/Not Resolved]
  - Blood count abnormal [Unknown]
  - Platelet count decreased [Unknown]
  - Product dose omission issue [Unknown]
